FAERS Safety Report 5883340-9 (Version None)
Quarter: 2008Q3

REPORT INFORMATION
  Report Type: 
  Country: None (occurrence: None)
  Receive Date: 20080912
  Receipt Date: 20080912
  Transmission Date: 20090109
  Serious: Yes (Other)
  Sender: FDA-Public Use
  Company Number: None

PATIENT
  Age: 21 Year
  Sex: Female

DRUGS (4)
  1. BUPROPION SL 150MG [Suspect]
     Indication: MAJOR DEPRESSION
     Dosage: 150 MG SL BID PO
     Route: 048
     Dates: start: 20080821
  2. PROZAC [Concomitant]
  3. AMBIEN [Concomitant]
  4. ATIVAN [Concomitant]

REACTIONS (1)
  - GRAND MAL CONVULSION [None]
